FAERS Safety Report 22373059 (Version 1)
Quarter: 2023Q2

REPORT INFORMATION
  Report Type: Spontaneous
  Country: US (occurrence: None)
  Receive Date: 20230525
  Receipt Date: 20230525
  Transmission Date: 20230721
  Serious: Yes (Disabling)
  Sender: FDA-Public Use
  Company Number: None

PATIENT
  Age: 19 Year
  Sex: Male
  Weight: 81 kg

DRUGS (1)
  1. REGOXIDINE [Suspect]
     Active Substance: MINOXIDIL
     Indication: Alopecia
     Dosage: OTHER QUANTITY : 2.11 OUNCE(S);?FREQUENCY : TWICE A DAY;?
     Route: 061
     Dates: start: 20230429, end: 20230502

REACTIONS (3)
  - Erectile dysfunction [None]
  - Testicular pain [None]
  - White blood cell count decreased [None]

NARRATIVE: CASE EVENT DATE: 20230429
